FAERS Safety Report 8339320 (Version 5)
Quarter: 2014Q1

REPORT INFORMATION
  Report Type: Spontaneous
  Country: US (occurrence: US)
  Receive Date: 20120117
  Receipt Date: 20140311
  Transmission Date: 20141002
  Serious: Yes (Other)
  Sender: FDA-Public Use
  Company Number: US-PFIZER INC-2012010695

PATIENT
  Age: 88 Year
  Sex: Female

DRUGS (3)
  1. LIPITOR [Suspect]
     Dosage: 20 MG, 1X/DAY AT BEDTIME
     Route: 048
  2. PRISTIQ [Suspect]
     Dosage: 50 MG, 1X/DAY EVERY MORNING
     Route: 048
  3. LINCOCIN [Suspect]
     Dosage: UNK

REACTIONS (3)
  - Hypoacusis [Unknown]
  - Cataract [Unknown]
  - Visual impairment [Unknown]
